FAERS Safety Report 12991107 (Version 2)
Quarter: 2017Q1

REPORT INFORMATION
  Report Type: Report from Study
  Country: CA (occurrence: CA)
  Receive Date: 20161201
  Receipt Date: 20170127
  Transmission Date: 20170428
  Serious: Yes (Other)
  Sender: FDA-Public Use
  Company Number: CA-JNJFOC-20161128714

PATIENT
  Age: 51 Year
  Sex: Female
  Weight: 55.5 kg

DRUGS (3)
  1. REMICADE [Suspect]
     Active Substance: INFLIXIMAB
     Indication: CROHN^S DISEASE
     Route: 042
     Dates: start: 20160628
  2. PENICILLIN NOS [Suspect]
     Active Substance: PENICILLIN
     Indication: PRODUCT USED FOR UNKNOWN INDICATION
     Route: 065
  3. REMICADE [Suspect]
     Active Substance: INFLIXIMAB
     Indication: CROHN^S DISEASE
     Route: 042
     Dates: start: 20161125

REACTIONS (10)
  - Wound dehiscence [Unknown]
  - Malaise [Unknown]
  - Intestinal stenosis [Unknown]
  - Swelling [Unknown]
  - Diarrhoea [Not Recovered/Not Resolved]
  - Incisional drainage [Unknown]
  - General physical health deterioration [Not Recovered/Not Resolved]
  - Drug hypersensitivity [Unknown]
  - Incision site pain [Unknown]
  - Post procedural complication [Unknown]

NARRATIVE: CASE EVENT DATE: 20161118
